FAERS Safety Report 7014704-8 (Version None)
Quarter: 2010Q3

REPORT INFORMATION
  Report Type: 
  Country: None (occurrence: None)
  Receive Date: 20100927
  Receipt Date: 20100913
  Transmission Date: 20110219
  Serious: Yes (Hospitalization)
  Sender: FDA-Public Use
  Company Number: PHHY2010FR61160

PATIENT
  Age: 64 Year
  Sex: Male

DRUGS (7)
  1. VALSARTAN  AND HYDROCHLOROTHIAZIDE [Suspect]
     Dosage: 1 TABLET DAILY
     Route: 048
     Dates: end: 20100615
  2. TEGRETOL [Suspect]
     Dosage: 3 DF DAILY
     Route: 048
  3. TEGRETOL [Suspect]
     Dosage: 2 DF DAILY
  4. KEPPRA [Concomitant]
     Dosage: 1000 MG DAILY
     Route: 048
  5. LOXEN [Concomitant]
     Dosage: 100 MG DAILY
  6. PRAVASTATIN [Concomitant]
     Dosage: 20 MG, QD
  7. VALIUM [Concomitant]
     Dosage: UNK

REACTIONS (7)
  - ACCOMMODATION DISORDER [None]
  - CEREBELLAR SYNDROME [None]
  - CONVULSION [None]
  - DRUG LEVEL INCREASED [None]
  - FALL [None]
  - HYPOKALAEMIA [None]
  - HYPONATRAEMIA [None]
